FAERS Safety Report 19830458 (Version 1)
Quarter: 2021Q3

REPORT INFORMATION
  Report Type: Report from Study
  Country: ES (occurrence: ES)
  Receive Date: 20210915
  Receipt Date: 20210915
  Transmission Date: 20211014
  Serious: Yes (Disabling, Other)
  Sender: FDA-Public Use
  Company Number: ES-BAUSCH-BL-2021-029857

PATIENT
  Age: 67 Year
  Sex: Female
  Weight: 94.2 kg

DRUGS (5)
  1. INSULIN GLARGINE [Suspect]
     Active Substance: INSULIN GLARGINE
     Indication: TYPE 2 DIABETES MELLITUS
     Route: 058
  2. NOVORAPID [Concomitant]
     Active Substance: INSULIN ASPART
     Indication: TYPE 2 DIABETES MELLITUS
     Dosage: (ADJUSTED AS PER REGIMEN)
     Route: 058
  3. INSULIN GLARGINE [Suspect]
     Active Substance: INSULIN GLARGINE
     Route: 058
     Dates: start: 2017
  4. METFORMIN HYDROCHLORIDE. [Suspect]
     Active Substance: METFORMIN HYDROCHLORIDE
     Indication: TYPE 2 DIABETES MELLITUS
     Dosage: UNK
     Route: 048
  5. INSULIN GLARGINE [Suspect]
     Active Substance: INSULIN GLARGINE
     Route: 058

REACTIONS (11)
  - Gait inability [Unknown]
  - Post procedural complication [Unknown]
  - Blindness unilateral [Not Recovered/Not Resolved]
  - Exercise lack of [Unknown]
  - Uterine operation [Unknown]
  - Blood glucose increased [Unknown]
  - Retinal injury [Unknown]
  - Disability [Unknown]
  - Cataract diabetic [Not Recovered/Not Resolved]
  - Diarrhoea [Unknown]
  - Multiple use of single-use product [Unknown]
